FAERS Safety Report 8421050-4 (Version None)
Quarter: 2012Q2

REPORT INFORMATION
  Report Type: 
  Country: None (occurrence: None)
  Receive Date: 20120608
  Receipt Date: 20120604
  Transmission Date: 20120825
  Serious: Yes (Other)
  Sender: FDA-Public Use
  Company Number: CA-US-EMD SERONO, INC.-7005456

PATIENT
  Sex: Female

DRUGS (2)
  1. REBIF [Suspect]
     Route: 058
     Dates: start: 20021115
  2. REBIF [Suspect]
     Indication: MULTIPLE SCLEROSIS
     Dates: start: 20021101

REACTIONS (7)
  - CHILLS [None]
  - BURNING SENSATION [None]
  - INJECTION SITE DISCOLOURATION [None]
  - CARPAL TUNNEL DECOMPRESSION [None]
  - INJECTION SITE MASS [None]
  - MULTIPLE SCLEROSIS RELAPSE [None]
  - FATIGUE [None]
